FAERS Safety Report 24386150 (Version 1)
Quarter: 2024Q4

REPORT INFORMATION
  Report Type: Spontaneous
  Country: US (occurrence: US)
  Receive Date: 20241001
  Receipt Date: 20241001
  Transmission Date: 20250114
  Serious: No
  Sender: BAUSCH AND LOMB
  Company Number: US-BAUSCHBL-2024BNL033933

PATIENT
  Age: 60 Year
  Sex: Female
  Weight: 54.43 kg

DRUGS (1)
  1. XIIDRA [Suspect]
     Active Substance: LIFITEGRAST
     Indication: Dry eye
     Route: 047
     Dates: start: 202401, end: 20240915

REACTIONS (12)
  - Swelling of eyelid [Unknown]
  - Eyelids pruritus [Unknown]
  - Erythema of eyelid [Unknown]
  - Drug hypersensitivity [Unknown]
  - Ocular hyperaemia [Unknown]
  - Ageusia [Unknown]
  - Eye disorder [Unknown]
  - Lacrimation increased [Unknown]
  - Eye swelling [Unknown]
  - Urticaria [Recovering/Resolving]
  - Eye pruritus [Unknown]
  - Conjunctivitis allergic [Unknown]

NARRATIVE: CASE EVENT DATE: 20240101
